FAERS Safety Report 5656427-3 (Version None)
Quarter: 2008Q1

REPORT INFORMATION
  Report Type: 
  Country: None (occurrence: None)
  Receive Date: 20080309
  Receipt Date: 20080104
  Transmission Date: 20080703
  Serious: No
  Sender: FDA-Public Use
  Company Number: US-BAYER-200810116BCC

PATIENT
  Sex: Male
  Weight: 86 kg

DRUGS (3)
  1. ALEVE [Suspect]
     Indication: CARPAL TUNNEL SYNDROME
     Dosage: UNIT DOSE: 220 MG
     Route: 048
     Dates: start: 20010101
  2. ONE A DAY MAXIMUM [Concomitant]
     Indication: VITAMIN SUPPLEMENTATION
     Route: 048
     Dates: start: 20050101
  3. VIACTIV [Concomitant]

REACTIONS (1)
  - CARPAL TUNNEL SYNDROME [None]
